FAERS Safety Report 9067210 (Version 1)
Quarter: 2013Q1

REPORT INFORMATION
  Report Type: Report from Study
  Country: US (occurrence: US)
  Receive Date: 20130201
  Receipt Date: 20130201
  Transmission Date: 20140127
  Serious: No
  Sender: FDA-Public Use
  Company Number: US-ABBOTT-12P-163-1028613-00

PATIENT
  Age: 52 Year
  Sex: Female

DRUGS (14)
  1. HUMIRA [Suspect]
     Indication: CROHN^S DISEASE
     Dates: start: 20121207, end: 20121207
  2. HUMIRA [Suspect]
     Dates: start: 20121222
  3. CIPROFLOXACIN [Concomitant]
     Indication: ABSCESS INTESTINAL
     Dosage: FOR 30 DAYS
  4. FLAGYL [Concomitant]
     Indication: ABSCESS INTESTINAL
     Dosage: FOR 2 MONTHS
  5. HYOSCYAMINE [Concomitant]
     Indication: MUSCLE SPASMS
  6. OMEPRAZOLE [Concomitant]
     Indication: CROHN^S DISEASE
     Dosage: 20 MG DAILY
  7. GABAPENTIN [Concomitant]
     Indication: BACK PAIN
     Dosage: 100 MG X 2 CAPS THREE TIMES PER DAY
  8. VICODIN [Concomitant]
     Indication: BACK PAIN
     Dosage: 5/500 MG TWICE DAILY
  9. VENTOLIN [Concomitant]
     Indication: ASTHMA
     Dosage: INHALER
  10. ADVAIR [Concomitant]
     Indication: ASTHMA
     Dosage: INHALER
  11. B12 [Concomitant]
     Indication: VITAMIN SUPPLEMENTATION
  12. D3 [Concomitant]
     Indication: VITAMIN SUPPLEMENTATION
  13. ZINC [Concomitant]
     Indication: MINERAL SUPPLEMENTATION
  14. PROBIOTIC [Concomitant]
     Indication: PROBIOTIC THERAPY
     Dosage: 30 BILLION UNITS DAILY

REACTIONS (5)
  - Wrong technique in drug usage process [Recovering/Resolving]
  - Nausea [Unknown]
  - Vomiting [Recovered/Resolved]
  - Diarrhoea [Unknown]
  - Feeling abnormal [Recovering/Resolving]
